FAERS Safety Report 4643585-2 (Version None)
Quarter: 2005Q2

REPORT INFORMATION
  Report Type: 
  Country: None (occurrence: None)
  Receive Date: 20050425
  Receipt Date: 20050216
  Transmission Date: 20051028
  Serious: Yes (Life-Threatening)
  Sender: FDA-Public Use
  Company Number: JP-BOEHRINGER INGELHEIM PHARMACEUTICALS, INC.-2005-BP-02600NB

PATIENT
  Age: 80 Year
  Sex: Male

DRUGS (1)
  1. MICARDIS [Suspect]
     Indication: HYPERTENSION
     Route: 048
     Dates: start: 20050215, end: 20050216

REACTIONS (2)
  - DEPRESSED LEVEL OF CONSCIOUSNESS [None]
  - SHOCK [None]
